FAERS Safety Report 6318556-0 (Version None)
Quarter: 2009Q3

REPORT INFORMATION
  Report Type: 
  Country: None (occurrence: None)
  Receive Date: 20090821
  Receipt Date: 20090812
  Transmission Date: 20100115
  Serious: Yes (Hospitalization, Other)
  Sender: FDA-Public Use
  Company Number: PHHY2009MX31910

PATIENT
  Sex: Female

DRUGS (8)
  1. EXFORGE [Suspect]
     Indication: HYPERTENSION
     Dosage: 2 DF (160/5 MG) PER DAY
     Dates: start: 20090101
  2. RASILEZ [Suspect]
     Dosage: 1 DF (150 MG) PER DAY
     Dates: start: 20090501, end: 20090801
  3. PRIMPERAN [Concomitant]
  4. TEBONIN - SLOW RELEASE [Concomitant]
  5. ANGIOTROFIN [Concomitant]
  6. PERSANTIN [Concomitant]
  7. DISGREN [Concomitant]
  8. DIPHENYLHYDANTOIN [Concomitant]

REACTIONS (2)
  - CEREBROVASCULAR INSUFFICIENCY [None]
  - HYPERTENSIVE CRISIS [None]
